FAERS Safety Report 6745010-4 (Version None)
Quarter: 2010Q2

REPORT INFORMATION
  Report Type: 
  Country: None (occurrence: None)
  Receive Date: 20100527
  Receipt Date: 20100519
  Transmission Date: 20101027
  Serious: Yes (Hospitalization)
  Sender: FDA-Public Use
  Company Number: CO-ROCHE-703899

PATIENT
  Sex: Male

DRUGS (3)
  1. ACTEMRA [Suspect]
     Indication: RHEUMATOID ARTHRITIS
     Dosage: LAST INFUSION WAS ON 5 APRIL 2010.
     Route: 042
     Dates: start: 20090903
  2. ACETAMINOPHEN [Concomitant]
     Indication: PAIN
     Dosage: FREQUENCY: PRN
     Route: 048
  3. PREDNISOLONE [Concomitant]
     Indication: RHEUMATOID ARTHRITIS
     Dosage: FREQUENCY: QD
     Route: 048

REACTIONS (1)
  - PLEURAL EFFUSION [None]
